FAERS Safety Report 5975271-0 (Version None)
Quarter: 2008Q4

REPORT INFORMATION
  Report Type: 
  Country: None (occurrence: None)
  Receive Date: 20081202
  Receipt Date: 20081125
  Transmission Date: 20090506
  Serious: Yes (Other)
  Sender: FDA-Public Use
  Company Number: US-BAYER-200832719NA

PATIENT
  Age: 25 Year
  Sex: Female

DRUGS (2)
  1. MIRENA [Suspect]
     Indication: CONTRACEPTION
     Route: 015
     Dates: start: 20060101, end: 20080903
  2. MIRENA [Suspect]
     Route: 015
     Dates: start: 20080930

REACTIONS (2)
  - CERVICAL DYSPLASIA [None]
  - INTRA-UTERINE CONTRACEPTIVE DEVICE EXPELLED [None]
